FAERS Safety Report 24245845 (Version 1)
Quarter: 2024Q3

REPORT INFORMATION
  Report Type: Report from Study
  Country: CA (occurrence: CA)
  Receive Date: 20240824
  Receipt Date: 20240824
  Transmission Date: 20241016
  Serious: Yes (Other)
  Sender: TAKEDA
  Company Number: CA-TAKEDA-2022TUS027538

PATIENT
  Age: 75 Year
  Sex: Female
  Weight: 65.2 kg

DRUGS (4)
  1. HUMAN IMMUNOGLOBULIN G [Suspect]
     Active Substance: HUMAN IMMUNOGLOBULIN G
     Indication: Primary immunodeficiency syndrome
     Dosage: 8 GRAM, 1/WEEK
     Route: 050
     Dates: start: 20180101
  2. HUMAN IMMUNOGLOBULIN G [Suspect]
     Active Substance: HUMAN IMMUNOGLOBULIN G
     Dosage: 8 GRAM, 1/WEEK
     Route: 058
  3. HUMAN IMMUNOGLOBULIN G [Suspect]
     Active Substance: HUMAN IMMUNOGLOBULIN G
     Dosage: 8 GRAM, 1/WEEK
     Route: 050
  4. HUMAN IMMUNOGLOBULIN G [Suspect]
     Active Substance: HUMAN IMMUNOGLOBULIN G
     Dosage: 8 GRAM, 1/WEEK
     Route: 050

REACTIONS (26)
  - Sepsis [Unknown]
  - Neuropathy peripheral [Not Recovered/Not Resolved]
  - Pneumonia [Unknown]
  - Hepatic cirrhosis [Unknown]
  - Dysaesthesia [Not Recovered/Not Resolved]
  - Infusion site scar [Unknown]
  - Weight increased [Unknown]
  - Weight decreased [Unknown]
  - Infusion related reaction [Unknown]
  - Memory impairment [Unknown]
  - Lipohypertrophy [Recovered/Resolved]
  - Sinusitis [Unknown]
  - Inappropriate schedule of product administration [Unknown]
  - Lymphocyte count decreased [Unknown]
  - Monocyte count decreased [Unknown]
  - Platelet count decreased [Unknown]
  - Blood immunoglobulin G abnormal [Unknown]
  - Urinary tract infection [Unknown]
  - Treatment failure [Unknown]
  - White blood cell count decreased [Unknown]
  - Infusion site nodule [Unknown]
  - Abdominal tenderness [Unknown]
  - Anxiety [Unknown]
  - Blood pressure increased [Unknown]
  - Influenza like illness [Unknown]
  - Hypertension [Unknown]

NARRATIVE: CASE EVENT DATE: 20220429
